FAERS Safety Report 10175013 (Version 1)
Quarter: 2014Q2

REPORT INFORMATION
  Report Type: Spontaneous
  Country: CR (occurrence: CR)
  Receive Date: 20140515
  Receipt Date: 20140515
  Transmission Date: 20141212
  Serious: Yes (Other)
  Sender: FDA-Public Use
  Company Number: PHHY2014CR058973

PATIENT
  Sex: Female

DRUGS (6)
  1. ACLASTA [Suspect]
     Dosage: UNK
     Route: 042
  2. ACLASTA [Suspect]
     Dosage: UNK
     Route: 042
  3. ACLASTA [Suspect]
     Dosage: UNK
     Route: 042
  4. ACLASTA [Suspect]
     Dosage: UNK
     Route: 042
  5. ACLASTA [Suspect]
     Dosage: UNK
     Route: 042
  6. ACLASTA [Suspect]
     Dosage: UNK
     Route: 042

REACTIONS (2)
  - Pulmonary oedema [Unknown]
  - Dyspnoea [Unknown]
